FAERS Safety Report 10172793 (Version 1)
Quarter: 2014Q2

REPORT INFORMATION
  Report Type: Report from Study
  Country: CA (occurrence: CA)
  Receive Date: 20140515
  Receipt Date: 20140515
  Transmission Date: 20141212
  Serious: Yes (Death)
  Sender: FDA-Public Use
  Company Number: CA-ROCHE-1401555

PATIENT
  Sex: Female

DRUGS (14)
  1. RITUXAN [Suspect]
     Indication: GRANULOMATOSIS WITH POLYANGIITIS
     Route: 042
     Dates: start: 20121108
  2. RITUXAN [Suspect]
     Route: 042
     Dates: start: 20121129
  3. PREDNISONE [Concomitant]
  4. SYNTHROID [Concomitant]
  5. PREVACID [Concomitant]
  6. FOLIC ACID [Concomitant]
  7. ESTRACE [Concomitant]
  8. FERROUS FUMARATE [Concomitant]
  9. FENTANYL PATCH [Concomitant]
  10. CELEXA (CANADA) [Concomitant]
  11. RISPERDAL [Concomitant]
  12. PROVERA [Concomitant]
  13. DIDROCAL [Concomitant]
  14. OXAZEPAM [Concomitant]

REACTIONS (1)
  - Death [Fatal]
